FAERS Safety Report 23352465 (Version 2)
Quarter: 2024Q3

REPORT INFORMATION
  Report Type: Report from Study
  Country: CA (occurrence: CA)
  Receive Date: 20231229
  Receipt Date: 20240914
  Transmission Date: 20241016
  Serious: Yes (Other)
  Sender: ABBVIE
  Company Number: CA-ABBVIE-4270001

PATIENT
  Sex: Male

DRUGS (4)
  1. LUPRON [Suspect]
     Active Substance: LEUPROLIDE ACETATE
     Indication: Prostate cancer
     Route: 030
     Dates: start: 20191009
  2. LUPRON [Suspect]
     Active Substance: LEUPROLIDE ACETATE
     Route: 030
  3. LUPRON [Suspect]
     Active Substance: LEUPROLIDE ACETATE
     Route: 030
  4. LUPRON [Suspect]
     Active Substance: LEUPROLIDE ACETATE
     Route: 030

REACTIONS (7)
  - Hip arthroplasty [Recovered/Resolved]
  - Red blood cell count decreased [Not Recovered/Not Resolved]
  - Therapeutic response unexpected [Unknown]
  - Groin pain [Unknown]
  - Pre-existing condition improved [Unknown]
  - Infection [Unknown]
  - Hip arthroplasty [Unknown]

NARRATIVE: CASE EVENT DATE: 20230101
